FAERS Safety Report 25276793 (Version 1)
Quarter: 2025Q2

REPORT INFORMATION
  Report Type: Spontaneous
  Country: DE (occurrence: DE)
  Receive Date: 20250507
  Receipt Date: 20250507
  Transmission Date: 20250716
  Serious: No
  Sender: ALKEM
  Company Number: None

PATIENT
  Sex: Male
  Weight: 72 kg

DRUGS (7)
  1. ATORVASTATIN CALCIUM [Suspect]
     Active Substance: ATORVASTATIN CALCIUM
     Indication: Product used for unknown indication
     Route: 065
     Dates: start: 20200519, end: 20231004
  2. ATORVASTATIN CALCIUM [Suspect]
     Active Substance: ATORVASTATIN CALCIUM
     Route: 065
  3. EZETIMIBE [Suspect]
     Active Substance: EZETIMIBE
     Indication: Carotid arteriosclerosis
     Dosage: 10 MILLIGRAM, QD
     Route: 048
     Dates: start: 20200519, end: 20231004
  4. EZETIMIBE [Suspect]
     Active Substance: EZETIMIBE
     Indication: Type V hyperlipidaemia
     Route: 065
  5. ROSUVASTATIN [Suspect]
     Active Substance: ROSUVASTATIN
     Indication: Product used for unknown indication
     Route: 065
  6. BEMPEDOIC ACID [Suspect]
     Active Substance: BEMPEDOIC ACID
     Indication: Carotid arteriosclerosis
     Dosage: 180 MILLIGRAM, QD
     Route: 048
     Dates: start: 20230726, end: 20231004
  7. BEMPEDOIC ACID [Suspect]
     Active Substance: BEMPEDOIC ACID
     Indication: Type V hyperlipidaemia

REACTIONS (2)
  - Drug intolerance [Unknown]
  - Myalgia [Recovered/Resolved]
